FAERS Safety Report 9365246 (Version 1)
Quarter: 2013Q2

REPORT INFORMATION
  Report Type: Spontaneous
  Country: FR (occurrence: FR)
  Receive Date: 20130625
  Receipt Date: 20130625
  Transmission Date: 20140414
  Serious: Yes (Hospitalization)
  Sender: FDA-Public Use
  Company Number: FR-009507513-1306FRA007167

PATIENT
  Age: 62 Year
  Sex: Female

DRUGS (1)
  1. FOSAVANCE [Suspect]
     Dosage: 1 DF, QW
     Route: 048
     Dates: start: 2006

REACTIONS (2)
  - Jessner^s lymphocytic infiltration [Not Recovered/Not Resolved]
  - Rash erythematous [Unknown]
